FAERS Safety Report 13407240 (Version 1)
Quarter: 2017Q2

REPORT INFORMATION
  Report Type: Spontaneous
  Country: US (occurrence: US)
  Receive Date: 20170405
  Receipt Date: 20170405
  Transmission Date: 20170830
  Serious: Yes (Other)
  Sender: FDA-Public Use
  Company Number: US-TEVA-755546USA

PATIENT
  Age: 8 Decade
  Sex: Female

DRUGS (5)
  1. ACITRETIN. [Suspect]
     Active Substance: ACITRETIN
     Indication: PROPHYLAXIS
     Dosage: 20 MG/DAY
     Route: 065
  2. PREDNISONE. [Concomitant]
     Active Substance: PREDNISONE
     Indication: IMMUNOSUPPRESSANT DRUG THERAPY
     Dosage: 5 MG/DAY
     Route: 065
  3. TACROLIMUS. [Concomitant]
     Active Substance: TACROLIMUS
     Indication: IMMUNOSUPPRESSANT DRUG THERAPY
     Dosage: 2 MG/DAY
     Route: 065
  4. SIROLIMUS. [Suspect]
     Active Substance: SIROLIMUS
     Indication: IMMUNOSUPPRESSANT DRUG THERAPY
     Dosage: 2MG/DAY
     Route: 065
  5. ZINC OXIDE. [Concomitant]
     Active Substance: ZINC OXIDE
     Route: 065

REACTIONS (4)
  - Skin squamous cell carcinoma metastatic [Unknown]
  - Skin ulcer [Recovered/Resolved]
  - Staphylococcal infection [Recovered/Resolved]
  - Mucosal inflammation [Recovered/Resolved]
